FAERS Safety Report 7283921-4 (Version None)
Quarter: 2011Q1

REPORT INFORMATION
  Report Type: 
  Country: None (occurrence: None)
  Receive Date: 20110209
  Receipt Date: 20110128
  Transmission Date: 20110831
  Serious: Yes (Other)
  Sender: FDA-Public Use
  Company Number: PHHY2011AR07017

PATIENT
  Age: 23 Year
  Sex: Female

DRUGS (3)
  1. THIORIDAZINE HCL [Suspect]
     Indication: TUBERCULOSIS
  2. AMINOSALICYLIC ACID [Suspect]
     Indication: TUBERCULOSIS
  3. LINEZOLID [Suspect]
     Indication: TUBERCULOSIS
     Dosage: 600 MG, QD

REACTIONS (1)
  - OPTIC NEURITIS [None]
